FAERS Safety Report 24422549 (Version 1)
Quarter: 2024Q4

REPORT INFORMATION
  Report Type: Spontaneous
  Country: US (occurrence: US)
  Receive Date: 20241010
  Receipt Date: 20241010
  Transmission Date: 20250115
  Serious: Yes (Life-Threatening, Hospitalization)
  Sender: MYLAN
  Company Number: US-MYLANLABS-2024M1090580

PATIENT
  Age: 61 Year
  Sex: Male

DRUGS (2)
  1. ACETAMINOPHEN [Suspect]
     Active Substance: ACETAMINOPHEN
     Indication: Product used for unknown indication
     Dosage: UNK
     Route: 048
  2. ETHYLENE GLYCOL [Suspect]
     Active Substance: ETHYLENE GLYCOL
     Indication: Product used for unknown indication
     Dosage: UNK
     Route: 048

REACTIONS (6)
  - Toxicity to various agents [Recovered/Resolved]
  - Alcohol poisoning [Recovered/Resolved]
  - Metabolic acidosis [Recovered/Resolved]
  - Hyperosmolar state [Recovered/Resolved]
  - Drug level increased [Recovered/Resolved]
  - Acute kidney injury [Recovered/Resolved]
